FAERS Safety Report 18752290 (Version 1)
Quarter: 2021Q1

REPORT INFORMATION
  Report Type: Spontaneous
  Country: US (occurrence: US)
  Receive Date: 20210118
  Receipt Date: 20210118
  Transmission Date: 20210419
  Serious: No
  Sender: FDA-Public Use
  Company Number: US-FOUNDATIONCONSUMERHC-2020-US-023327

PATIENT
  Age: 17 Year
  Sex: Female
  Weight: 51.26 kg

DRUGS (3)
  1. CRANBERRY. [Concomitant]
     Active Substance: CRANBERRY
  2. SMOKES MARIJUANA [Concomitant]
  3. PLAN B ONE?STEP [Suspect]
     Active Substance: LEVONORGESTREL
     Indication: POST COITAL CONTRACEPTION
     Dosage: 1 TABLET APPROXIMATELY ONCE MONTHLY FOR PAST 3?4 MONTHS. ALSO 07?NOV?2020 AND 12?NOV?2020.
     Route: 048
     Dates: start: 202007, end: 20201112

REACTIONS (3)
  - Intentional product misuse [Recovered/Resolved]
  - Menstruation irregular [Not Recovered/Not Resolved]
  - Product use in unapproved indication [Recovered/Resolved]

NARRATIVE: CASE EVENT DATE: 202007
